FAERS Safety Report 19433198 (Version 2)
Quarter: 2021Q3

REPORT INFORMATION
  Report Type: Spontaneous
  Country: AT (occurrence: AT)
  Receive Date: 20210617
  Receipt Date: 20210819
  Transmission Date: 20211014
  Serious: Yes (Death)
  Sender: FDA-Public Use
  Company Number: AT-PFIZER INC-2021696856

PATIENT
  Age: 56 Year
  Sex: Female

DRUGS (1)
  1. LORVIQUA [Suspect]
     Active Substance: LORLATINIB
     Indication: NON-SMALL CELL LUNG CANCER
     Dosage: 100 MG, 1X/DAY
     Dates: start: 20210528

REACTIONS (1)
  - Pulmonary embolism [Fatal]

NARRATIVE: CASE EVENT DATE: 20210607
